FAERS Safety Report 8984186 (Version 2)
Quarter: 2013Q1

REPORT INFORMATION
  Report Type: Spontaneous
  Country: US (occurrence: None)
  Receive Date: 20121213
  Receipt Date: 20121213
  Transmission Date: 20140127
  Serious: Yes (Other)
  Sender: FDA-Public Use
  Company Number: AUR-APL-2012-05278

PATIENT
  Age: 60 Year
  Sex: Female
  Weight: 56.7 kg

DRUGS (3)
  1. MELOXICAM [Suspect]
     Indication: ARTHRITIS
     Dosage: (15 MG, 1 IN 1 D), UNKNOWN
     Route: 048
  2. CELEBREX (CELECOXIB) [Suspect]
     Indication: ARTHRITIS
  3. ACETAMINOPHEN\HYDROCODONE BITARTRATE [Concomitant]

REACTIONS (10)
  - Drug ineffective [None]
  - Clavicle fracture [None]
  - Fall [None]
  - Back pain [None]
  - Pain [None]
  - Arthritis [None]
  - Blood cholesterol increased [None]
  - Dysgraphia [None]
  - Economic problem [None]
  - Accident [None]
